FAERS Safety Report 13603307 (Version 1)
Quarter: 2017Q2

REPORT INFORMATION
  Report Type: Report from Study
  Country: US (occurrence: US)
  Receive Date: 20170601
  Receipt Date: 20170601
  Transmission Date: 20170830
  Serious: Yes (Hospitalization)
  Sender: FDA-Public Use
  Company Number: US-TARO-2017TAR00412

PATIENT
  Age: 53 Year
  Sex: Male
  Weight: 127.6 kg

DRUGS (4)
  1. BLINDED PIMECROLIMUS CREAM 1% [Suspect]
     Active Substance: PIMECROLIMUS
     Dosage: UNK, 2X/DAY
     Route: 061
     Dates: start: 20170502, end: 20170516
  2. UNSPECIFIED TESTOSTERONE MEDICATION [Concomitant]
     Active Substance: TESTOSTERONE
     Dosage: 100 MG, 2X/MONTH
     Route: 030
  3. ELIDEL [Suspect]
     Active Substance: PIMECROLIMUS
     Dosage: UNK, 2X/DAY
     Route: 061
     Dates: start: 20170502, end: 20170516
  4. BLINDED PLACEBO [Suspect]
     Active Substance: INVESTIGATIONAL PRODUCT
     Dosage: UNK, 2X/DAY
     Route: 061
     Dates: start: 20170502, end: 20170516

REACTIONS (1)
  - Diverticulitis [Recovered/Resolved]

NARRATIVE: CASE EVENT DATE: 201705
